FAERS Safety Report 5157834-8 (Version None)
Quarter: 2006Q4

REPORT INFORMATION
  Report Type: 
  Country: None (occurrence: None)
  Receive Date: 20061116
  Receipt Date: 20061113
  Transmission Date: 20070319
  Serious: Yes (Life-Threatening)
  Sender: FDA-Public Use
  Company Number: GXKR2006DE06970

PATIENT
  Age: 68 Year
  Sex: Male
  Weight: 83 kg

DRUGS (1)
  1. FLUCONAZOLE [Suspect]
     Dosage: 150 MG, QW, ORAL
     Route: 048

REACTIONS (1)
  - VENTRICULAR EXTRASYSTOLES [None]
